FAERS Safety Report 7535494-6 (Version None)
Quarter: 2011Q2

REPORT INFORMATION
  Report Type: 
  Country: None (occurrence: None)
  Receive Date: 20110609
  Receipt Date: 20110602
  Transmission Date: 20111010
  Serious: Yes (Death, Other)
  Sender: FDA-Public Use
  Company Number: JP-CELGENEUS-087-50794-11060754

PATIENT
  Sex: Male

DRUGS (2)
  1. VIDAZA [Suspect]
     Dosage: 25 MILLIGRAM/SQ. METER
     Route: 058
     Dates: start: 20110509, end: 20110515
  2. VIDAZA [Suspect]
     Indication: MYELODYSPLASTIC SYNDROME
     Dosage: 75 MILLIGRAM/SQ. METER
     Route: 058
     Dates: start: 20110317, end: 20110322

REACTIONS (5)
  - RENAL IMPAIRMENT [None]
  - CELLULITIS [None]
  - PNEUMONIA [None]
  - NAUSEA [None]
  - FEBRILE NEUTROPENIA [None]
